FAERS Safety Report 17845705 (Version 3)
Quarter: 2020Q3

REPORT INFORMATION
  Report Type: Report from Study
  Country: None (occurrence: US)
  Receive Date: 20200601
  Receipt Date: 20200813
  Transmission Date: 20201103
  Serious: Yes (Hospitalization, Other)
  Sender: FDA-Public Use
  Company Number: US-BIOVITRUM-2019US4431

PATIENT
  Age: 5 Year
  Sex: Male

DRUGS (1)
  1. KINERET [Suspect]
     Active Substance: ANAKINRA
     Indication: AUTOINFLAMMATORY DISEASE
     Route: 058
     Dates: start: 20190211

REACTIONS (5)
  - Respiratory syncytial virus infection [Recovered/Resolved]
  - Gait disturbance [Unknown]
  - Seizure [Unknown]
  - Off label use [Unknown]
  - Gait spastic [Unknown]

NARRATIVE: CASE EVENT DATE: 20190211
